FAERS Safety Report 4332922-4 (Version None)
Quarter: 2004Q2

REPORT INFORMATION
  Report Type: 
  Country: None (occurrence: None)
  Receive Date: 20040406
  Receipt Date: 20040324
  Transmission Date: 20050107
  Serious: Yes (Hospitalization)
  Sender: FDA-Public Use
  Company Number: 200411256FR

PATIENT
  Age: 34 Year
  Sex: Male

DRUGS (3)
  1. BIRODOGYL [Suspect]
     Route: 048
     Dates: start: 20031208, end: 20031211
  2. HEPT-A-MYL [Suspect]
     Route: 048
     Dates: start: 20031210, end: 20031211
  3. BACTRIM [Suspect]
     Route: 048
     Dates: start: 20031015, end: 20031211

REACTIONS (1)
  - RASH SCARLATINIFORM [None]
